FAERS Safety Report 9362128 (Version 1)
Quarter: 2013Q2

REPORT INFORMATION
  Report Type: Spontaneous
  Country: US (occurrence: US)
  Receive Date: 20130621
  Receipt Date: 20130621
  Transmission Date: 20140414
  Serious: Yes (Other)
  Sender: FDA-Public Use
  Company Number: US-009507513-1306USA009066

PATIENT
  Sex: 0

DRUGS (1)
  1. INTEGRILIN [Suspect]

REACTIONS (1)
  - Cerebrovascular accident [Unknown]
